FAERS Safety Report 7316295-0 (Version None)
Quarter: 2011Q1

REPORT INFORMATION
  Report Type: 
  Country: None (occurrence: None)
  Receive Date: 20110225
  Receipt Date: 20110221
  Transmission Date: 20110831
  Serious: Yes (Life-Threatening, Hospitalization, Other)
  Sender: FDA-Public Use
  Company Number: DK-PFIZER INC-2011037874

PATIENT
  Age: 68 Year
  Sex: Female
  Weight: 84 kg

DRUGS (8)
  1. PRIMPERAN TAB [Concomitant]
     Indication: NAUSEA
     Dosage: 10 MG, AS NEEDED
     Route: 048
  2. CHAMPIX [Suspect]
     Dosage: 0.5 MG, 2X/DAY
     Route: 048
     Dates: start: 20110201, end: 20110204
  3. APROVEL [Concomitant]
     Indication: HYPERTENSION
     Dosage: 150 MG, 1X/DAY
     Route: 047
     Dates: start: 20000101, end: 20110206
  4. ACETYLSALICYLIC ACID/MAGNESIUM OXIDE HEAVY [Concomitant]
     Dosage: 75 MG, 1X/DAY
     Route: 048
     Dates: start: 20000101
  5. FLUOXETINE [Concomitant]
     Indication: DEPRESSION
     Dosage: 20 MG, 1X/DAY
     Route: 048
     Dates: start: 20000101
  6. CHAMPIX [Suspect]
     Indication: SMOKING CESSATION THERAPY
     Dosage: 0.5 MG, 1X/DAY
     Dates: start: 20110129, end: 20110131
  7. MAGNESIUM OXIDE [Concomitant]
     Indication: CONSTIPATION
     Dosage: 1000 MG, 1X/DAY
     Route: 048
     Dates: start: 20000101
  8. ZOK-ZID [Concomitant]
     Indication: HYPERTENSION
     Dosage: 100/12.5 MG
     Route: 048
     Dates: start: 20000101, end: 20110206

REACTIONS (5)
  - PULMONARY EMBOLISM [None]
  - CHOLECYSTITIS [None]
  - ATRIAL FIBRILLATION [None]
  - LIVER DISORDER [None]
  - RENAL FAILURE [None]
